FAERS Safety Report 22228286 (Version 2)
Quarter: 2023Q2

REPORT INFORMATION
  Report Type: Spontaneous
  Country: US (occurrence: US)
  Receive Date: 20230419
  Receipt Date: 20230424
  Transmission Date: 20230722
  Serious: Yes (Other)
  Sender: FDA-Public Use
  Company Number: US-SANOFI-01578941

PATIENT
  Age: 71 Year
  Sex: Female

DRUGS (1)
  1. LANTUS SOLOSTAR [Suspect]
     Active Substance: INSULIN GLARGINE
     Indication: Type 2 diabetes mellitus
     Dosage: 36 IU, HS

REACTIONS (5)
  - Cataract [Unknown]
  - Cerebrovascular accident [Unknown]
  - Injury associated with device [Unknown]
  - Memory impairment [Unknown]
  - Visual impairment [Unknown]
